FAERS Safety Report 8146246-0 (Version None)
Quarter: 2012Q1

REPORT INFORMATION
  Report Type: 
  Country: None (occurrence: None)
  Receive Date: 20120217
  Receipt Date: 20110818
  Transmission Date: 20120608
  Serious: No
  Sender: FDA-Public Use
  Company Number: US-ABBOTT-11P-163-0847652-00

PATIENT
  Sex: Female
  Weight: 104.42 kg

DRUGS (4)
  1. ASPIRIN [Concomitant]
     Indication: PRODUCT USED FOR UNKNOWN INDICATION
     Dosage: IN MORNING
  2. METFORMIN HCL [Concomitant]
     Indication: PRODUCT USED FOR UNKNOWN INDICATION
  3. SIMCOR [Suspect]
     Indication: PRODUCT USED FOR UNKNOWN INDICATION
     Dosage: 500/20 AT NIGHT
     Dates: start: 20110701
  4. ASPIRIN [Concomitant]
     Dosage: ONE TAB IN THE EVENING WITH NIASPAN

REACTIONS (1)
  - BLOOD GLUCOSE INCREASED [None]
